FAERS Safety Report 9162157 (Version 1)
Quarter: 2013Q1

REPORT INFORMATION
  Report Type: Spontaneous
  Country: MX (occurrence: MX)
  Receive Date: 20130314
  Receipt Date: 20130314
  Transmission Date: 20140127
  Serious: Yes (Other)
  Sender: FDA-Public Use
  Company Number: PHHY2013MX024673

PATIENT
  Age: 62 Year
  Sex: Male

DRUGS (2)
  1. DIOVAN [Suspect]
     Indication: HYPERTENSION
     Dosage: 1 DF, DAILY
     Dates: start: 201007, end: 201301
  2. ASPIRIN PROTECT [Concomitant]
     Dosage: 1 DF, DAILY
     Dates: start: 201203

REACTIONS (2)
  - Diabetes mellitus [Not Recovered/Not Resolved]
  - Road traffic accident [Unknown]
